FAERS Safety Report 22536046 (Version 3)
Quarter: 2023Q2

REPORT INFORMATION
  Report Type: Spontaneous
  Country: KR (occurrence: KR)
  Receive Date: 20230608
  Receipt Date: 20230619
  Transmission Date: 20230722
  Serious: Yes (Hospitalization)
  Sender: FDA-Public Use
  Company Number: KR202304004481

PATIENT
  Age: 76 Year
  Sex: Female
  Weight: 57 kg

DRUGS (21)
  1. BENDAMUSTINE HYDROCHLORIDE [Suspect]
     Active Substance: BENDAMUSTINE HYDROCHLORIDE
     Indication: Chronic lymphocytic leukaemia
     Dosage: 101.3 MG, CYCLE 1 BR THERAPY
     Route: 042
     Dates: start: 20221109
  2. BENDAMUSTINE HYDROCHLORIDE [Suspect]
     Active Substance: BENDAMUSTINE HYDROCHLORIDE
     Dosage: 135 MG, CYCLE 2 BR THERAPY
     Route: 042
     Dates: start: 20221207
  3. BENDAMUSTINE HYDROCHLORIDE [Suspect]
     Active Substance: BENDAMUSTINE HYDROCHLORIDE
     Dosage: 135 MG, CYCLE 3 BR THERAPY
     Route: 042
  4. BENDAMUSTINE HYDROCHLORIDE [Suspect]
     Active Substance: BENDAMUSTINE HYDROCHLORIDE
     Dosage: 135 MG, CYCLE 4 BR THERAPY
     Route: 042
  5. BENDAMUSTINE HYDROCHLORIDE [Suspect]
     Active Substance: BENDAMUSTINE HYDROCHLORIDE
     Dosage: 135 MG, CYCLE 5 BR THERAPY
     Route: 042
     Dates: start: 20230309
  6. RITUXIMAB [Suspect]
     Active Substance: RITUXIMAB
     Indication: Chronic lymphocytic leukaemia
     Dosage: 562.5 MG, CYCLE 1 BR THERAPY
     Route: 042
     Dates: start: 20221109
  7. RITUXIMAB [Suspect]
     Active Substance: RITUXIMAB
     Dosage: 750 MG, CYCLE 2 BR THERAPY
     Route: 042
     Dates: start: 20221207
  8. RITUXIMAB [Suspect]
     Active Substance: RITUXIMAB
     Dosage: 750 MG, CYCLE 3 BR THERAPY
     Route: 042
  9. RITUXIMAB [Suspect]
     Active Substance: RITUXIMAB
     Dosage: 750 MG, CYCLE 4 BR THERAPY
     Route: 042
  10. RITUXIMAB [Suspect]
     Active Substance: RITUXIMAB
     Dosage: 750 MG, CYCLE 5 BR THERAPY
     Route: 042
     Dates: start: 20230308
  11. HYDROCHLOROTHIAZIDE\VALSARTAN [Concomitant]
     Active Substance: HYDROCHLOROTHIAZIDE\VALSARTAN
     Indication: Hypertension
     Dosage: UNK
     Route: 065
     Dates: start: 2015
  12. GEMIGLIPTIN\METFORMIN [Concomitant]
     Active Substance: GEMIGLIPTIN\METFORMIN
     Indication: Type 2 diabetes mellitus
     Dosage: UNK
     Route: 065
     Dates: start: 2020
  13. ATORVASTATIN [Concomitant]
     Active Substance: ATORVASTATIN
     Indication: Hypertension
     Dosage: UNK
     Route: 065
     Dates: start: 2015
  14. CLONAZEPAM [Concomitant]
     Active Substance: CLONAZEPAM
     Indication: Insomnia
     Dosage: UNK
     Route: 065
     Dates: start: 2018
  15. QUETIAPINE [Concomitant]
     Active Substance: QUETIAPINE
     Indication: Bipolar disorder
     Dosage: UNK
     Route: 065
     Dates: start: 2018
  16. DIASTASE\LIPASE\URSODIOL [Concomitant]
     Active Substance: DIASTASE\LIPASE\URSODIOL
     Indication: Product used for unknown indication
     Dosage: UNK
     Route: 065
     Dates: start: 2015
  17. IMIPRAMINE HYDROCHLORIDE [Concomitant]
     Active Substance: IMIPRAMINE HYDROCHLORIDE
     Indication: Bipolar disorder
     Dosage: UNK
     Route: 065
     Dates: start: 2018
  18. VICAFEROL [Concomitant]
     Indication: Nutritional supplementation
     Dosage: UNK
     Route: 065
     Dates: start: 2018
  19. AVOCADO\SOYBEAN OIL [Concomitant]
     Active Substance: AVOCADO\SOYBEAN OIL
     Indication: Osteoarthritis
     Dosage: UNK
     Route: 065
     Dates: start: 2018
  20. FLURAZEPAM HYDROCHLORIDE [Concomitant]
     Active Substance: FLURAZEPAM HYDROCHLORIDE
     Indication: Insomnia
     Dosage: UNK
     Route: 065
     Dates: start: 2018
  21. CHOLINE ALFOSCERATE [Concomitant]
     Active Substance: CHOLINE ALFOSCERATE
     Indication: Product used for unknown indication
     Dosage: UNK
     Route: 065

REACTIONS (1)
  - Cytomegalovirus oesophagitis [Recovered/Resolved]

NARRATIVE: CASE EVENT DATE: 20230407
